FAERS Safety Report 7491020-1 (Version None)
Quarter: 2011Q2

REPORT INFORMATION
  Report Type: 
  Country: None (occurrence: None)
  Receive Date: 20110519
  Receipt Date: 20110516
  Transmission Date: 20111010
  Serious: No
  Sender: FDA-Public Use
  Company Number: US-PFIZER INC-2011060181

PATIENT
  Sex: Female

DRUGS (3)
  1. AMITRIPTYLINE HYDROCHLORIDE [Concomitant]
     Indication: NEUROMYOPATHY
     Dosage: UNK
     Dates: start: 20070101
  2. WARFARIN [Concomitant]
     Indication: ANTITHROMBIN III DEFICIENCY
     Dosage: UNK
     Dates: start: 20040101
  3. CHANTIX [Suspect]
     Indication: SMOKING CESSATION THERAPY
     Dosage: 1 MG, UNK
     Dates: start: 20081013, end: 20081113

REACTIONS (7)
  - DEPRESSION [None]
  - ANXIETY [None]
  - AGGRESSION [None]
  - ABNORMAL BEHAVIOUR [None]
  - EMOTIONAL DISTRESS [None]
  - IMPAIRED DRIVING ABILITY [None]
  - MENTAL DISORDER [None]
